FAERS Safety Report 9909354 (Version 1)
Quarter: 2014Q1

REPORT INFORMATION
  Report Type: Spontaneous
  Country: US (occurrence: None)
  Receive Date: 20140214
  Receipt Date: 20140214
  Transmission Date: 20141002
  Serious: No
  Sender: FDA-Public Use
  Company Number: None

PATIENT
  Age: 58 Year
  Sex: Male

DRUGS (5)
  1. BUPROPION [Suspect]
     Dosage: 150MG SR  PO
     Route: 048
  2. SERTRALINE [Concomitant]
  3. AMBIEN [Concomitant]
  4. LORAZEPAM [Concomitant]
  5. QUETIAPINE [Concomitant]

REACTIONS (2)
  - Malaise [None]
  - Abdominal discomfort [None]
